FAERS Safety Report 5475491-8 (Version None)
Quarter: 2007Q3

REPORT INFORMATION
  Report Type: 
  Country: None (occurrence: None)
  Receive Date: 20070914
  Receipt Date: 20070605
  Transmission Date: 20080115
  Serious: Yes (Other)
  Sender: FDA-Public Use
  Company Number: 07-071

PATIENT
  Age: 89 Year
  Sex: Female
  Weight: 58.514 kg

DRUGS (7)
  1. ALEVE [Suspect]
     Indication: ARTHRALGIA
     Dosage: 220 MG, DAILY, ORAL
     Route: 048
     Dates: start: 20070427, end: 20070429
  2. ALEVE [Suspect]
     Indication: ARTHRALGIA
     Dosage: 440 MG, DAILY, ORAL
     Route: 048
  3. VYTORIN [Concomitant]
  4. HYDROCHLOROTHIAZIDE [Concomitant]
  5. LISINOPRIL [Concomitant]
  6. NORVASC [Concomitant]
  7. FOSAMAX [Concomitant]

REACTIONS (3)
  - BLOOD PRESSURE INCREASED [None]
  - DIZZINESS [None]
  - EMOTIONAL DISTRESS [None]
